FAERS Safety Report 6851024-6 (Version None)
Quarter: 2010Q3

REPORT INFORMATION
  Report Type: 
  Country: None (occurrence: None)
  Receive Date: 20100716
  Receipt Date: 20080122
  Transmission Date: 20110219
  Serious: No
  Sender: FDA-Public Use
  Company Number: US-PFIZER INC-2007091676

PATIENT
  Sex: Female
  Weight: 114.09 kg

DRUGS (8)
  1. CHANTIX [Suspect]
     Indication: SMOKING CESSATION THERAPY
     Dates: start: 20071001
  2. CARDIZEM [Concomitant]
  3. ALPRAZOLAM [Concomitant]
  4. CELEXA [Concomitant]
  5. ACETYLSALICYLIC ACID [Concomitant]
  6. COMBIVENT [Concomitant]
  7. DRUG, UNSPECIFIED [Concomitant]
  8. BENICAR [Concomitant]

REACTIONS (2)
  - DYSPNOEA [None]
  - RASH [None]
